FAERS Safety Report 14290211 (Version 1)
Quarter: 2017Q4

REPORT INFORMATION
  Report Type: Spontaneous
  Country: US (occurrence: None)
  Receive Date: 20171215
  Receipt Date: 20171215
  Transmission Date: 20180321
  Serious: Yes (Death)
  Sender: FDA-Public Use
  Company Number: None

PATIENT
  Age: 76 Year
  Sex: Male
  Weight: 63.5 kg

DRUGS (4)
  1. VENOFER [Suspect]
     Active Substance: IRON SUCROSE
     Indication: END STAGE RENAL DISEASE
     Dosage: 100MG 3 X WEEK X 10 DOSES INTRAVENOUS PUSH
     Route: 042
     Dates: start: 20171118, end: 20171122
  2. MIRCERA [Concomitant]
     Active Substance: METHOXY POLYETHYLENE GLYCOL-EPOETIN BETA
  3. VENOFER [Suspect]
     Active Substance: IRON SUCROSE
     Indication: IRON DEFICIENCY
     Dosage: 100MG 3 X WEEK X 10 DOSES INTRAVENOUS PUSH
     Route: 042
     Dates: start: 20171118, end: 20171122
  4. HECTOROL [Suspect]
     Active Substance: DOXERCALCIFEROL
     Indication: HYPERPARATHYROIDISM SECONDARY
     Dosage: 2.0 MG 3 X WEEK INTRAVENOUS PUSH
     Route: 042
     Dates: start: 20171121, end: 20171122

REACTIONS (3)
  - Unresponsive to stimuli [None]
  - Heart rate increased [None]
  - Blood pressure systolic increased [None]

NARRATIVE: CASE EVENT DATE: 20171122
